FAERS Safety Report 14317383 (Version 3)
Quarter: 2020Q2

REPORT INFORMATION
  Report Type: Spontaneous
  Country: DK (occurrence: DK)
  Receive Date: 20171222
  Receipt Date: 20200416
  Transmission Date: 20200713
  Serious: Yes (Other)
  Sender: FDA-Public Use
  Company Number: DK-JNJFOC-20171222047

PATIENT
  Sex: Female

DRUGS (5)
  1. VIVELLE-DOT [Concomitant]
     Active Substance: ESTRADIOL
     Indication: PREMATURE MENOPAUSE
     Route: 065
     Dates: start: 2007
  2. REGAINE UNSPECIFIED [Suspect]
     Active Substance: MINOXIDIL
     Route: 061
     Dates: start: 201701
  3. REGAINE UNSPECIFIED [Suspect]
     Active Substance: MINOXIDIL
     Indication: ALOPECIA
     Route: 061
  4. REGAINE UNSPECIFIED [Suspect]
     Active Substance: MINOXIDIL
     Route: 061
  5. CLIMENE [Concomitant]
     Active Substance: CYPROTERONE ACETATE\ESTRADIOL VALERATE
     Indication: PREMATURE MENOPAUSE
     Route: 065
     Dates: start: 2007

REACTIONS (3)
  - Arrhythmia [Not Recovered/Not Resolved]
  - Alopecia [Not Recovered/Not Resolved]
  - Therapeutic product effect incomplete [Unknown]

NARRATIVE: CASE EVENT DATE: 2017
